FAERS Safety Report 5741354-3 (Version None)
Quarter: 2008Q2

REPORT INFORMATION
  Report Type: 
  Country: None (occurrence: None)
  Receive Date: 20080513
  Receipt Date: 20080506
  Transmission Date: 20081010
  Serious: Yes (Hospitalization)
  Sender: FDA-Public Use
  Company Number: 2008-02858

PATIENT
  Age: 55 Year
  Sex: Female

DRUGS (2)
  1. TRELSTAR DEPOT [Suspect]
     Indication: BREAST CANCER
     Dosage: 3.75 MG, INTRAMUSCULAR
     Route: 030
     Dates: start: 20051223
  2. TAMOXIFEN CITRATE [Suspect]
     Indication: BREAST CANCER
     Dosage: 20 MG, ORAL
     Route: 048
     Dates: start: 20051223

REACTIONS (3)
  - ANXIETY [None]
  - CONDITION AGGRAVATED [None]
  - DEPRESSION [None]
